FAERS Safety Report 13502482 (Version 1)
Quarter: 2017Q2

REPORT INFORMATION
  Report Type: Spontaneous
  Country: US (occurrence: US)
  Receive Date: 20170502
  Receipt Date: 20170502
  Transmission Date: 20170830
  Serious: No
  Sender: FDA-Public Use
  Company Number: US-AUROBINDO-AUR-APU-2016-06122

PATIENT
  Age: 16 Year
  Sex: Male
  Weight: 81.63 kg

DRUGS (2)
  1. CLARITYN                           /00082102/ [Concomitant]
     Indication: PRODUCT USED FOR UNKNOWN INDICATION
     Dosage: AT NIGHT
     Route: 065
  2. MINOCYCLINE HYDROCHLORIDE CAPSULES USP 100 MG [Suspect]
     Active Substance: MINOCYCLINE HYDROCHLORIDE
     Indication: ACNE
     Dosage: ONE CAPSULE DAILY
     Route: 065
     Dates: start: 20160511, end: 20160511

REACTIONS (5)
  - Rash generalised [Not Recovered/Not Resolved]
  - Throat irritation [Not Recovered/Not Resolved]
  - Nausea [Not Recovered/Not Resolved]
  - Erythema [Not Recovered/Not Resolved]
  - Lip swelling [Not Recovered/Not Resolved]

NARRATIVE: CASE EVENT DATE: 20160511
